FAERS Safety Report 5833109-6 (Version None)
Quarter: 2008Q3

REPORT INFORMATION
  Report Type: 
  Country: None (occurrence: None)
  Receive Date: 20080805
  Receipt Date: 20080729
  Transmission Date: 20090109
  Serious: Yes (Other)
  Sender: FDA-Public Use
  Company Number: JP-ASTRAZENECA-2008AP05453

PATIENT
  Age: 23 Year
  Sex: Female
  Weight: 51.5 kg

DRUGS (6)
  1. MEROPENEM [Suspect]
     Indication: SEPSIS
     Route: 042
     Dates: start: 20080601, end: 20080602
  2. PENTCILLIN [Concomitant]
     Indication: SEPSIS
     Route: 042
     Dates: start: 20080527, end: 20080531
  3. DALACIN-S [Concomitant]
     Indication: SEPSIS
     Route: 042
     Dates: start: 20080527, end: 20080531
  4. LOXONIN [Concomitant]
     Indication: PYREXIA
     Route: 048
     Dates: start: 20080602, end: 20080602
  5. VOLTAREN [Concomitant]
     Indication: PYREXIA
     Route: 054
     Dates: start: 20080602, end: 20080602
  6. CIPROFLOXACIN HCL [Concomitant]
     Indication: PNEUMONIA
     Route: 042
     Dates: start: 20080602, end: 20080609

REACTIONS (1)
  - INTERSTITIAL LUNG DISEASE [None]
